FAERS Safety Report 22120740 (Version 1)
Quarter: 2023Q1

REPORT INFORMATION
  Report Type: Spontaneous
  Country: GB (occurrence: GB)
  Receive Date: 20230321
  Receipt Date: 20230321
  Transmission Date: 20230418
  Serious: Yes (Other)
  Sender: FDA-Public Use
  Company Number: None

PATIENT
  Age: 40 Year
  Sex: Female

DRUGS (12)
  1. REMDESIVIR [Suspect]
     Active Substance: REMDESIVIR
     Indication: Coronavirus infection
     Dosage: UNK
     Route: 042
     Dates: start: 20230310, end: 20230310
  2. REMDESIVIR [Suspect]
     Active Substance: REMDESIVIR
     Dosage: UNK
     Route: 042
     Dates: start: 20230311, end: 20230311
  3. REMDESIVIR [Suspect]
     Active Substance: REMDESIVIR
     Dosage: UNK
     Route: 042
     Dates: start: 20230312, end: 20230312
  4. BARICITINIB [Concomitant]
     Active Substance: BARICITINIB
     Indication: Juvenile idiopathic arthritis
  5. CALCIUM CARBONATE [Concomitant]
     Active Substance: CALCIUM CARBONATE
     Indication: Osteoporosis
  6. FOLIC ACID [Concomitant]
     Active Substance: FOLIC ACID
     Indication: Juvenile idiopathic arthritis
  7. METHOTREXATE [Concomitant]
     Active Substance: METHOTREXATE
     Indication: Juvenile idiopathic arthritis
  8. OMEPRAZOLE [Concomitant]
     Active Substance: OMEPRAZOLE
     Indication: Gastritis
  9. ACETAMINOPHEN [Concomitant]
     Active Substance: ACETAMINOPHEN
     Indication: Juvenile idiopathic arthritis
  10. PIROXICAM [Concomitant]
     Active Substance: PIROXICAM
     Indication: Juvenile idiopathic arthritis
  11. RAMIPRIL [Concomitant]
     Active Substance: RAMIPRIL
     Indication: Hypertension
  12. CINNARIZINE [Concomitant]
     Active Substance: CINNARIZINE
     Indication: Nausea

REACTIONS (1)
  - Blood pressure increased [Recovering/Resolving]

NARRATIVE: CASE EVENT DATE: 20230301
